FAERS Safety Report 13595635 (Version 1)
Quarter: 2017Q2

REPORT INFORMATION
  Report Type: Spontaneous
  Country: US (occurrence: US)
  Receive Date: 20170531
  Receipt Date: 20170531
  Transmission Date: 20170830
  Serious: No
  Sender: FDA-Public Use
  Company Number: US-JNJFOC-20170419241

PATIENT
  Age: 79 Year
  Sex: Female
  Weight: 68.04 kg

DRUGS (6)
  1. VALSARTAN. [Concomitant]
     Active Substance: VALSARTAN
     Indication: HYPERTENSION
     Route: 065
  2. ATORVASTATIN [Concomitant]
     Active Substance: ATORVASTATIN
     Indication: BLOOD CHOLESTEROL INCREASED
     Dosage: FOR YEARS
     Route: 065
  3. COREG CR [Concomitant]
     Active Substance: CARVEDILOL PHOSPHATE
     Indication: HYPERTENSION
     Dosage: FOR YEARS
     Route: 065
  4. FUROSEMIDE. [Concomitant]
     Active Substance: FUROSEMIDE
     Indication: FLUID RETENTION
     Dosage: FOR YEARS
     Route: 065
  5. TYLENOL EXTRA STRENGTH [Suspect]
     Active Substance: ACETAMINOPHEN
     Indication: ARTHRALGIA
     Route: 048
  6. COUMADIN [Concomitant]
     Active Substance: WARFARIN SODIUM
     Indication: ANTICOAGULANT THERAPY
     Dosage: FOR YEARS
     Route: 065

REACTIONS (2)
  - Drug ineffective [Unknown]
  - Drug administration error [Unknown]
